FAERS Safety Report 13960481 (Version 1)
Quarter: 2017Q3

REPORT INFORMATION
  Report Type: Spontaneous
  Country: US (occurrence: None)
  Receive Date: 20170912
  Receipt Date: 20170912
  Transmission Date: 20171128
  Serious: No
  Sender: FDA-Public Use
  Company Number: None

PATIENT
  Age: 72 Year
  Sex: Male
  Weight: 96.1 kg

DRUGS (2)
  1. LISINOPRIL. [Suspect]
     Active Substance: LISINOPRIL
     Route: 048
     Dates: start: 20080721
  2. OLODATEROL [Suspect]
     Active Substance: OLODATEROL
     Dosage: DOSE - 2 PUFF(S)
     Route: 055
     Dates: start: 20160628, end: 20160915

REACTIONS (2)
  - Wheezing [None]
  - Cough [None]

NARRATIVE: CASE EVENT DATE: 20160915
